FAERS Safety Report 7428778-3 (Version None)
Quarter: 2011Q2

REPORT INFORMATION
  Report Type: 
  Country: None (occurrence: None)
  Receive Date: 20110421
  Receipt Date: 20110413
  Transmission Date: 20111010
  Serious: Yes (Hospitalization)
  Sender: FDA-Public Use
  Company Number: US-BRISTOL-MYERS SQUIBB COMPANY-15653876

PATIENT
  Age: 71 Year
  Sex: Male

DRUGS (4)
  1. IPILIMUMAB [Suspect]
     Indication: MALIGNANT MELANOMA
     Route: 042
     Dates: start: 20110325, end: 20110325
  2. COUMADIN [Concomitant]
     Indication: DEEP VEIN THROMBOSIS
     Dates: start: 20040101
  3. HYDROCODONE [Concomitant]
     Dates: start: 20110101
  4. LORAZEPAM [Concomitant]
     Dates: start: 20110207

REACTIONS (1)
  - ATRIAL FIBRILLATION [None]
